FAERS Safety Report 26048640 (Version 2)
Quarter: 2025Q4

REPORT INFORMATION
  Report Type: Report from Study
  Country: US (occurrence: US)
  Receive Date: 20251114
  Receipt Date: 20251209
  Transmission Date: 20260118
  Serious: No
  Sender: BOEHRINGER INGELHEIM
  Company Number: US-BoehringerIngelheim-2025-BI-107900

PATIENT
  Age: 59 Year
  Sex: Female

DRUGS (1)
  1. HERNEXEOS [Suspect]
     Active Substance: ZONGERTINIB
     Indication: Non-small cell lung cancer
     Dates: start: 20250823

REACTIONS (2)
  - Diarrhoea [Recovering/Resolving]
  - Pain [Not Recovered/Not Resolved]

NARRATIVE: CASE EVENT DATE: 20251101
